FAERS Safety Report 7182982-0 (Version None)
Quarter: 2010Q4

REPORT INFORMATION
  Report Type: 
  Country: None (occurrence: None)
  Receive Date: 20101210
  Receipt Date: 20101126
  Transmission Date: 20110411
  Serious: No
  Sender: FDA-Public Use
  Company Number: 2010-01010

PATIENT
  Sex: Male

DRUGS (2)
  1. ZICAM GOLD REMEDY GEL SWABS [Suspect]
     Indication: NASAL CONGESTION
     Dosage: AS DIRECTED
     Dates: start: 20070101, end: 20090101
  2. ZICAM GOLD REMEDY GEL SWABS [Suspect]
     Indication: NASOPHARYNGITIS
     Dosage: AS DIRECTED
     Dates: start: 20070101, end: 20090101

REACTIONS (4)
  - AGEUSIA [None]
  - ANOSMIA [None]
  - DYSGEUSIA [None]
  - NASAL DISCOMFORT [None]
